FAERS Safety Report 7115700-2 (Version None)
Quarter: 2010Q4

REPORT INFORMATION
  Report Type: 
  Country: None (occurrence: None)
  Receive Date: 20101122
  Receipt Date: 20101112
  Transmission Date: 20110411
  Serious: Yes (Other)
  Sender: FDA-Public Use
  Company Number: CA-AMGEN-CANSP2010002578

PATIENT

DRUGS (1)
  1. ENBREL [Suspect]
     Indication: RHEUMATOID ARTHRITIS
     Dosage: 50 MG, QWK
     Dates: start: 20090101, end: 20100801

REACTIONS (3)
  - RENAL IMPAIRMENT [None]
  - SEROSITIS [None]
  - SYSTEMIC LUPUS ERYTHEMATOSUS [None]
